FAERS Safety Report 5429474-4 (Version None)
Quarter: 2007Q3

REPORT INFORMATION
  Report Type: 
  Country: None (occurrence: None)
  Receive Date: 20070829
  Receipt Date: 20070828
  Transmission Date: 20080115
  Serious: Yes (Hospitalization)
  Sender: FDA-Public Use
  Company Number: A0676802A

PATIENT
  Age: 14 Year
  Sex: Female

DRUGS (2)
  1. NARAMIG [Suspect]
     Indication: DRUG USE FOR UNKNOWN INDICATION
     Dosage: 2.5MG TWICE PER DAY
     Route: 048
     Dates: start: 20070823, end: 20070823
  2. VALSARTAN [Concomitant]
     Dosage: 6TAB PER DAY
     Route: 048
     Dates: start: 20070823

REACTIONS (2)
  - HEADACHE [None]
  - SUICIDE ATTEMPT [None]
